FAERS Safety Report 4768665-2 (Version None)
Quarter: 2005Q3

REPORT INFORMATION
  Report Type: 
  Country: None (occurrence: None)
  Receive Date: 20050913
  Receipt Date: 20050831
  Transmission Date: 20060218
  Serious: Yes (Other)
  Sender: FDA-Public Use
  Company Number: 216044

PATIENT
  Age: 59 Year
  Sex: Male
  Weight: 133.8 kg

DRUGS (1)
  1. RITUXAN [Suspect]
     Indication: LYMPHOMA
     Dosage: 750 MG, Q3W, INTRAVENOUS
     Route: 042
     Dates: start: 20050510, end: 20050629

REACTIONS (9)
  - ALVEOLITIS ALLERGIC [None]
  - ATELECTASIS [None]
  - COUGH [None]
  - EJECTION FRACTION DECREASED [None]
  - LUNG NEOPLASM [None]
  - OEDEMA [None]
  - OPPORTUNISTIC INFECTION [None]
  - PLEURAL EFFUSION [None]
  - PNEUMONITIS [None]
